FAERS Safety Report 6293737-3 (Version None)
Quarter: 2009Q3

REPORT INFORMATION
  Report Type: 
  Country: None (occurrence: None)
  Receive Date: 20090803
  Receipt Date: 20090721
  Transmission Date: 20100115
  Serious: Yes (Other)
  Sender: FDA-Public Use
  Company Number: GB-BAYER-200926713GPV

PATIENT
  Age: 6 Year
  Sex: Female

DRUGS (1)
  1. NAPROXEN [Suspect]
     Indication: JUVENILE ARTHRITIS
     Dosage: 20 MG/KG/DAY
     Route: 065

REACTIONS (1)
  - VITAMIN C DEFICIENCY [None]
